FAERS Safety Report 9366083 (Version 1)
Quarter: 2013Q2

REPORT INFORMATION
  Report Type: Spontaneous
  Country: ES (occurrence: None)
  Receive Date: 20130619
  Receipt Date: 20130619
  Transmission Date: 20140414
  Serious: Yes (Hospitalization)
  Sender: FDA-Public Use
  Company Number: IBUP20130009

PATIENT
  Age: 32 Year
  Sex: Male

DRUGS (9)
  1. IBUPROFEN [Suspect]
     Indication: POSTOPERATIVE CARE
     Route: 048
  2. METOCLOPRAMIDE HYDROCHLORIDE [Suspect]
     Indication: POSTOPERATIVE CARE
  3. Q-PAP [Suspect]
     Indication: POSTOPERATIVE CARE
     Route: 048
  4. DIPYRONE [Suspect]
     Indication: POSTOPERATIVE CARE
     Route: 048
  5. DIMETHICONE [Suspect]
     Indication: POSTOPERATIVE CARE
     Route: 048
  6. OXAZEPAM [Suspect]
     Indication: POSTOPERATIVE CARE
     Route: 048
  7. PLANTAGO OVATA SEED [Suspect]
     Indication: POSTOPERATIVE CARE
     Route: 048
  8. HYPERICUM PERFORATUM [Suspect]
     Indication: POSTOPERATIVE CARE
     Route: 048
  9. PASSIFLORA INCARNATA [Suspect]
     Indication: POSTOPERATIVE CARE
     Route: 048

REACTIONS (6)
  - Drug reaction with eosinophilia and systemic symptoms [None]
  - Leukocytosis [None]
  - Eosinophilia [None]
  - Hypoproteinaemia [None]
  - Hepatic failure [None]
  - Acute generalised exanthematous pustulosis [None]
